FAERS Safety Report 7946405-3 (Version None)
Quarter: 2011Q4

REPORT INFORMATION
  Report Type: 
  Country: None (occurrence: None)
  Receive Date: 20111129
  Receipt Date: 20111114
  Transmission Date: 20120403
  Serious: Yes (Life-Threatening, Hospitalization, Other)
  Sender: FDA-Public Use
  Company Number: GB-WATSON-2011-16470

PATIENT
  Age: 73 Year
  Sex: Male

DRUGS (11)
  1. LACTULOSE [Concomitant]
     Indication: PRODUCT USED FOR UNKNOWN INDICATION
     Dosage: 15 ML, BID
  2. OMEPRAZOLE [Suspect]
     Indication: OESOPHAGITIS
     Dosage: 40 MG, UNK
     Route: 065
     Dates: start: 20110228, end: 20111004
  3. LISINOPRIL [Concomitant]
     Indication: PRODUCT USED FOR UNKNOWN INDICATION
     Dosage: 20 MG, DAILY
  4. SIMVASTATIN [Concomitant]
     Indication: PRODUCT USED FOR UNKNOWN INDICATION
     Dosage: 40 MG, DAILY
  5. WARFARIN SODIUM [Concomitant]
     Indication: ANEURYSM
  6. FERROUS FUMARATE [Concomitant]
     Indication: PRODUCT USED FOR UNKNOWN INDICATION
     Dosage: 305 MG, DAILY
     Route: 048
  7. ASPIRIN [Concomitant]
     Indication: PRODUCT USED FOR UNKNOWN INDICATION
     Dosage: 75 MG, DAILY
  8. RANITIDINE [Concomitant]
     Indication: PRODUCT USED FOR UNKNOWN INDICATION
     Dosage: 150 MG, BID
  9. SENOKOT [Concomitant]
     Indication: PRODUCT USED FOR UNKNOWN INDICATION
     Dosage: 1 DF, DAILY
  10. SPIRONOLACTONE [Concomitant]
     Indication: PRODUCT USED FOR UNKNOWN INDICATION
     Dosage: 25 MG, UNK
  11. ADIZEM-XL [Concomitant]
     Indication: PRODUCT USED FOR UNKNOWN INDICATION
     Dosage: 120 MG, DAILY

REACTIONS (16)
  - ALANINE AMINOTRANSFERASE INCREASED [None]
  - NEPHROPATHY [None]
  - C-REACTIVE PROTEIN INCREASED [None]
  - FATIGUE [None]
  - HYPOTENSION [None]
  - MYALGIA [None]
  - HYPOPHAGIA [None]
  - WHITE BLOOD CELL COUNT INCREASED [None]
  - DECREASED APPETITE [None]
  - BLOOD CREATININE INCREASED [None]
  - RENAL FAILURE ACUTE [None]
  - MALAISE [None]
  - HYPERKALAEMIA [None]
  - BODY TEMPERATURE INCREASED [None]
  - SEPSIS [None]
  - TUBULOINTERSTITIAL NEPHRITIS [None]
